FAERS Safety Report 19108627 (Version 5)
Quarter: 2021Q4

REPORT INFORMATION
  Report Type: Report from Study
  Country: JP (occurrence: JP)
  Receive Date: 20210408
  Receipt Date: 20211014
  Transmission Date: 20220304
  Serious: Yes (Hospitalization)
  Sender: FDA-Public Use
  Company Number: JP-ASTELLAS-2021JP000005

PATIENT
  Age: 53 Year
  Sex: Male

DRUGS (39)
  1. GILTERITINIB [Suspect]
     Active Substance: GILTERITINIB
     Indication: Acute myeloid leukaemia
     Route: 065
     Dates: start: 20201229
  2. GILTERITINIB [Suspect]
     Active Substance: GILTERITINIB
     Route: 065
  3. CYTARABINE [Suspect]
     Active Substance: CYTARABINE
     Indication: Acute myeloid leukaemia
     Dosage: REMISSION INDUCTION THERAPY: 100 MG/M2, ONCE DAILY, FROM DAY 1  TO DAY 7
     Route: 042
     Dates: start: 20201222, end: 20201229
  4. CYTARABINE [Suspect]
     Active Substance: CYTARABINE
     Dosage: CONSOLIDATION THERAPY: DAY1, 3, 5, 1.5 G/M2, TWICE DAILY
     Route: 042
     Dates: start: 20210202, end: 20210206
  5. CYTARABINE [Suspect]
     Active Substance: CYTARABINE
     Dosage: CONSOLIDATION THERAPY: DAY1, 3, 5, 1.5 G/M2, TWICE DAILY
     Route: 042
     Dates: start: 20210302, end: 20210306
  6. IDARUBICIN [Suspect]
     Active Substance: IDARUBICIN
     Indication: Acute myeloid leukaemia
     Dosage: REMISSION INDUCTION THERAPY: 12 MG/M2, ONCE DAILY, FROM DAY 1  TO DAY 3
     Route: 042
     Dates: start: 20201222, end: 20201224
  7. MIYA-BM [Concomitant]
     Active Substance: CLOSTRIDIUM BUTYRICUM SPORES STRAIN M-55
     Indication: Prophylaxis against diarrhoea
     Route: 048
  8. PETROLATUM [Concomitant]
     Active Substance: PETROLATUM
     Indication: Furuncle
     Dosage: ADEQUATE DOSE, SEVERAL TIMES DAILY
     Route: 050
  9. Teramuro [Concomitant]
     Indication: Hypertension
     Route: 048
  10. INDAPAMIDE [Concomitant]
     Active Substance: INDAPAMIDE
     Indication: Hypertension
     Route: 048
  11. URSODIOL [Concomitant]
     Active Substance: URSODIOL
     Indication: Hepatic steatosis
     Route: 048
  12. FAMOTIDINE [Concomitant]
     Active Substance: FAMOTIDINE
     Indication: Gastritis prophylaxis
     Route: 048
  13. RABEPRAZOLE SODIUM [Concomitant]
     Active Substance: RABEPRAZOLE SODIUM
     Indication: Gastritis prophylaxis
     Route: 048
  14. RABEPRAZOLE SODIUM [Concomitant]
     Active Substance: RABEPRAZOLE SODIUM
     Route: 048
     Dates: start: 20210107
  15. VEMLIDY [Concomitant]
     Active Substance: TENOFOVIR ALAFENAMIDE FUMARATE
     Indication: Hepatitis B
     Route: 048
     Dates: start: 20201222
  16. VEMLIDY [Concomitant]
     Active Substance: TENOFOVIR ALAFENAMIDE FUMARATE
     Route: 048
     Dates: start: 20201226
  17. FEBUXOSTAT [Concomitant]
     Active Substance: FEBUXOSTAT
     Indication: Hyperuricaemia
     Route: 048
     Dates: start: 20201222
  18. LULICONAZOLE [Concomitant]
     Active Substance: LULICONAZOLE
     Indication: Tinea pedis
     Dosage: ADEQUATE DOSE, ONCE DAILY
     Route: 050
     Dates: start: 20201222
  19. NADIFLOXACIN [Concomitant]
     Active Substance: NADIFLOXACIN
     Indication: Furuncle
     Dosage: ADEQUATE DOSE, ONCE DAILY
     Route: 050
     Dates: start: 20201222
  20. Azunol #1 [Concomitant]
     Indication: Proctalgia
     Dosage: ADEQUATE DOSE, SEVERAL TIMES DAILY
     Route: 062
     Dates: start: 20201228
  21. GLYCOSAMINOGLYCANS [Concomitant]
     Active Substance: GLYCOSAMINOGLYCANS
     Indication: Rash
     Dosage: ADEQUATE DOSE, SEVERAL TIMES DAILY
     Route: 050
     Dates: start: 20201228
  22. Voalla [Concomitant]
     Indication: Rash
     Dosage: ADEQUATE DOSE, SEVERAL TIMES DAILY
     Route: 050
     Dates: start: 20201228
  23. SILVER SULFADIAZINE [Concomitant]
     Active Substance: SILVER SULFADIAZINE
     Indication: Furuncle
     Dosage: ADEQUATE DOSE, ONCE DAILY
     Route: 050
     Dates: start: 20201228
  24. SODIUM GUALENATE MONOHYDRATE [Concomitant]
     Active Substance: SODIUM GUALENATE MONOHYDRATE
     Indication: Prophylaxis
     Dosage: ADEQUATE DOSE, SEVERAL TIMES DAILY
     Route: 061
     Dates: start: 20201229
  25. MEROPENEM [Concomitant]
     Active Substance: MEROPENEM
     Indication: Pyrexia
     Dosage: UNK UNK, UNKNOWN FREQ.
     Route: 041
     Dates: start: 20210102
  26. MEROPENEM [Concomitant]
     Active Substance: MEROPENEM
     Dosage: UNK UNK, UNKNOWN FREQ.
     Route: 041
     Dates: start: 20210219
  27. MEROPENEM [Concomitant]
     Active Substance: MEROPENEM
     Dosage: UNK UNK, UNKNOWN FREQ.
     Route: 041
     Dates: start: 20210325, end: 20210403
  28. TELMISARTAN [Concomitant]
     Active Substance: TELMISARTAN
     Indication: Hypertension
     Route: 048
     Dates: start: 20210116
  29. BISOPROLOL FUMARATE [Concomitant]
     Active Substance: BISOPROLOL FUMARATE
     Indication: Hypertension
     Route: 048
     Dates: start: 20210116
  30. AMLODIPINE [Concomitant]
     Active Substance: AMLODIPINE BESYLATE
     Indication: Hypertension
     Route: 048
     Dates: start: 20210116
  31. PANTETHINE [Concomitant]
     Active Substance: PANTETHINE
     Indication: Constipation
     Route: 048
     Dates: start: 20210204
  32. MAGNESIUM OXIDE [Concomitant]
     Active Substance: MAGNESIUM OXIDE
     Indication: Constipation
     Route: 048
     Dates: start: 20210204
  33. Minophagen c [Concomitant]
     Indication: Liver disorder
     Dosage: UNK UNK, ONCE DAILY
     Route: 042
     Dates: start: 20210208
  34. Minophagen c [Concomitant]
     Dosage: UNK UNK, ONCE DAILY
     Route: 042
     Dates: start: 20210312
  35. MICAFUNGIN SODIUM [Concomitant]
     Active Substance: MICAFUNGIN SODIUM
     Indication: Infection prophylaxis
     Route: 042
     Dates: start: 20210209
  36. MICAFUNGIN SODIUM [Concomitant]
     Active Substance: MICAFUNGIN SODIUM
     Route: 042
     Dates: start: 20210309
  37. MAXIPIME [Concomitant]
     Active Substance: CEFEPIME HYDROCHLORIDE
     Indication: Febrile neutropenia
     Route: 042
     Dates: start: 20210216
  38. VANCOMYCIN HYDROCHLORIDE [Concomitant]
     Active Substance: VANCOMYCIN HYDROCHLORIDE
     Indication: Pyrexia
     Dosage: UNK UNK, UNKNOWN FREQ.
     Route: 041
     Dates: start: 20210220, end: 20210403
  39. SULFAMETHOXAZOLE\TRIMETHOPRIM [Concomitant]
     Active Substance: SULFAMETHOXAZOLE\TRIMETHOPRIM
     Indication: Infection prophylaxis
     Dosage: 0.5 DF, ONCE DAILY
     Route: 048
     Dates: start: 20210226

REACTIONS (3)
  - Febrile neutropenia [Recovered/Resolved]
  - Febrile neutropenia [Recovered/Resolved]
  - Root canal infection [Recovered/Resolved]

NARRATIVE: CASE EVENT DATE: 20210103
